FAERS Safety Report 5542050-8 (Version None)
Quarter: 2007Q4

REPORT INFORMATION
  Report Type: 
  Country: None (occurrence: None)
  Receive Date: 20071205
  Receipt Date: 20071128
  Transmission Date: 20080405
  Serious: Yes (Other)
  Sender: FDA-Public Use
  Company Number: THQ2007A01135

PATIENT
  Age: 56 Year
  Sex: Female

DRUGS (8)
  1. ACTOS [Suspect]
     Indication: DIABETES MELLITUS
     Dosage: 15 MG (15 MG, 1 IN 1 D) PER ORAL
     Route: 048
     Dates: start: 20061101, end: 20071101
  2. LEVOTHYROXINE SODIUM [Concomitant]
  3. PRIMASPAN (ACETYLSALICYLIC ACID) [Concomitant]
  4. BURANA (IBUPROFEN) [Concomitant]
  5. METFORMIN HCL [Concomitant]
  6. AMARYL [Concomitant]
  7. CARCADE (RAMIPRIL) [Concomitant]
  8. EMCONCOR (BISOPROLOL) [Concomitant]

REACTIONS (2)
  - MACULAR OEDEMA [None]
  - RETINAL EXUDATES [None]
